FAERS Safety Report 23069310 (Version 1)
Quarter: 2023Q4

REPORT INFORMATION
  Report Type: Spontaneous
  Country: CA (occurrence: CA)
  Receive Date: 20231016
  Receipt Date: 20231016
  Transmission Date: 20240110
  Serious: Yes (Other)
  Sender: FDA-Public Use
  Company Number: CA-PFIZER INC-202300319477

PATIENT
  Age: 61 Year
  Sex: Female

DRUGS (2)
  1. ABRILADA [Suspect]
     Active Substance: ADALIMUMAB-AFZB
     Indication: Crohn^s disease
     Dosage: 160MG WEEK 0, 8-MG WEEK 2, THEN 40MG EVERY 2 WEEKS - FORMULATION NOT PROVIDED
     Route: 058
     Dates: start: 20230217
  2. ABRILADA [Suspect]
     Active Substance: ADALIMUMAB-AFZB
     Dosage: 160MG WEEK 0, 8-MG WEEK 2, THEN 40MG EVERY 2 WEEKS - FORMULATION NOT PROVIDED
     Route: 058
     Dates: start: 20230922

REACTIONS (10)
  - Uveitis [Unknown]
  - Pyoderma gangrenosum [Unknown]
  - Abscess [Unknown]
  - Anal fungal infection [Recovered/Resolved]
  - Anal fissure [Unknown]
  - Aphthous ulcer [Unknown]
  - Arthralgia [Unknown]
  - Erythema nodosum [Unknown]
  - Skin fissures [Unknown]
  - Product prescribing error [Unknown]

NARRATIVE: CASE EVENT DATE: 20230101
